FAERS Safety Report 7249404-2 (Version None)
Quarter: 2011Q1

REPORT INFORMATION
  Report Type: 
  Country: None (occurrence: None)
  Receive Date: 20110128
  Receipt Date: 20101116
  Transmission Date: 20110831
  Serious: Yes (Hospitalization)
  Sender: FDA-Public Use
  Company Number: US-BAYER-201038246NA

PATIENT
  Sex: Female
  Weight: 93.288 kg

DRUGS (21)
  1. YAZ [Suspect]
     Indication: ACNE
     Dosage: UNK
     Dates: start: 20070222, end: 20071010
  2. HYDROCODONE BITARTRATE AND ACETAMINOPHEN [Concomitant]
     Indication: PAIN
     Dosage: 5 MG, QD
  3. CHERATUSSIN AC [Concomitant]
     Dosage: UNK
     Route: 048
     Dates: start: 20070809
  4. METHADONE HCL [Concomitant]
     Indication: PAIN
     Dosage: 10 MG, UNK
     Route: 048
     Dates: start: 20070816
  5. LEVOXYL [Concomitant]
     Indication: HYPOTHYROIDISM
     Dosage: 75 ?G, QD
     Route: 048
  6. OXYCODONE HYDROCHLORIDE [Concomitant]
     Indication: PAIN
     Dosage: 10 MG, BID
     Route: 048
     Dates: start: 20070918
  7. ACIPHEX [Concomitant]
     Indication: GASTROOESOPHAGEAL REFLUX DISEASE
     Dosage: 20 MG, BID
     Route: 048
  8. HYDROCODONE BITARTRATE AND ACETAMINOPHEN [Concomitant]
     Dosage: 500 MG, QD
     Route: 048
  9. YASMIN [Suspect]
  10. VITAMIN D [Concomitant]
     Dosage: 1.25 MG, UNK
     Route: 048
     Dates: start: 20071018
  11. ACIPHEX [Concomitant]
     Indication: PEPTIC ULCER
  12. LORAZEPAM [Concomitant]
     Indication: ANXIETY
     Dosage: 2 MG, BID
     Route: 048
  13. OXYCODONE HCL AND ACETAMINOPHEN [Concomitant]
     Indication: PAIN
     Dosage: UNK
     Dates: start: 20070820
  14. YAZ [Suspect]
     Indication: CONTRACEPTION
  15. FLUOXETINE [Concomitant]
     Dosage: 20 MG, UNK
     Route: 048
  16. TOPAMAX [Concomitant]
     Indication: PAIN
     Dosage: 25 MG, QD
     Route: 048
     Dates: start: 20071017
  17. YASMIN [Suspect]
     Indication: ACNE
     Dosage: UNK
     Dates: start: 20070222, end: 20071010
  18. YASMIN [Suspect]
     Indication: CONTRACEPTION
  19. YASMIN [Suspect]
     Dosage: UNK
     Dates: start: 20070222, end: 20071010
  20. MUPIROCIN [Concomitant]
     Dosage: UNK
     Route: 061
     Dates: start: 20070525
  21. AZITHROMYCIN [Concomitant]
     Dosage: UNK
     Route: 048
     Dates: start: 20070809

REACTIONS (6)
  - GALLBLADDER DISORDER [None]
  - CHOLECYSTITIS [None]
  - CHOLECYSTITIS CHRONIC [None]
  - CHOLELITHIASIS [None]
  - PAIN [None]
  - GALLBLADDER CHOLESTEROLOSIS [None]
